FAERS Safety Report 8551678-2 (Version None)
Quarter: 2012Q3

REPORT INFORMATION
  Report Type: 
  Country: None (occurrence: None)
  Receive Date: 20120723
  Receipt Date: 20120723
  Transmission Date: 20120928
  Serious: No
  Sender: FDA-Public Use
  Company Number: None

PATIENT
  Sex: Female
  Weight: 65.7716 kg

DRUGS (2)
  1. SEROQUEL [Suspect]
     Indication: DELUSION
     Dosage: 75MG ONCE A DAY PO
     Route: 048
  2. BENADRYL [Suspect]
     Indication: RESTLESSNESS
     Dosage: 100MG 4 TIMES A DAY PO
     Route: 048

REACTIONS (1)
  - FEELING ABNORMAL [None]
